FAERS Safety Report 9057649 (Version 1)
Quarter: 2013Q1

REPORT INFORMATION
  Report Type: Spontaneous
  Country: US (occurrence: None)
  Receive Date: 20130204
  Receipt Date: 20130204
  Transmission Date: 20140127
  Serious: Yes (Hospitalization)
  Sender: FDA-Public Use
  Company Number: None

PATIENT
  Age: 50 Year
  Sex: Female
  Weight: 65.9 kg

DRUGS (5)
  1. TUSSIONEX [Suspect]
     Indication: COUGH
     Dosage: RECENT PO
  2. TUSSIONEX [Suspect]
     Indication: RESPIRATORY DISORDER
     Dosage: RECENT PO
  3. BIAXIN [Concomitant]
  4. CITALOPRAM [Concomitant]
  5. METOPROLOL [Concomitant]

REACTIONS (5)
  - Accidental overdose [None]
  - Unresponsive to stimuli [None]
  - Somnolence [None]
  - Ischaemic hepatitis [None]
  - Hepatic steatosis [None]
